FAERS Safety Report 15150179 (Version 1)
Quarter: 2018Q3

REPORT INFORMATION
  Report Type: Spontaneous
  Country: FR (occurrence: FR)
  Receive Date: 20180716
  Receipt Date: 20180716
  Transmission Date: 20181010
  Serious: Yes (Hospitalization, Disabling)
  Sender: FDA-Public Use
  Company Number: FR-TEVA-2018-FR-927197

PATIENT
  Age: 43 Year
  Sex: Female
  Weight: 92 kg

DRUGS (18)
  1. CELLCEPT [Suspect]
     Active Substance: MYCOPHENOLATE MOFETIL\MYCOPHENOLATE MOFETIL HYDROCHLORIDE
     Indication: PROPHYLAXIS AGAINST GRAFT VERSUS HOST DISEASE
     Dosage: 30 MG/KG DAILY;
     Route: 065
     Dates: start: 20180524
  2. TRIFLUCAN [Concomitant]
     Active Substance: FLUCONAZOLE
  3. ZELITREX [Concomitant]
     Active Substance: VALACYCLOVIR HYDROCHLORIDE
  4. BUSULFAN. [Suspect]
     Active Substance: BUSULFAN
     Indication: BONE MARROW CONDITIONING REGIMEN
     Route: 042
     Dates: start: 20180518
  5. FOLINORAL [Concomitant]
     Active Substance: LEUCOVORIN CALCIUM
  6. MERONEM [Concomitant]
     Active Substance: MEROPENEM
  7. ORACILLINE [Concomitant]
     Active Substance: PENICILLIN V
  8. BACTRIM [Concomitant]
     Active Substance: SULFAMETHOXAZOLE\TRIMETHOPRIM
  9. VANCOMYCINE [Concomitant]
     Active Substance: VANCOMYCIN
  10. FLUDARABINE [Suspect]
     Active Substance: FLUDARABINE PHOSPHATE
     Indication: MYELODYSPLASTIC SYNDROME
     Route: 042
     Dates: start: 20180511, end: 20180514
  11. CYCLOPHOSPHAMIDE. [Suspect]
     Active Substance: CYCLOPHOSPHAMIDE
     Indication: BONE MARROW CONDITIONING REGIMEN
     Dosage: 50 MG/KG DAILY;
     Route: 042
     Dates: start: 20180520, end: 20180528
  12. CYTARABINE. [Suspect]
     Active Substance: CYTARABINE
     Indication: MYELODYSPLASTIC SYNDROME
     Route: 042
     Dates: start: 20180511, end: 20180514
  13. AMSACRINE [Suspect]
     Active Substance: AMSACRINE
     Indication: MYELODYSPLASTIC SYNDROME
     Route: 042
     Dates: start: 20180511, end: 20180514
  14. SOLU?MEDROL [Concomitant]
     Active Substance: METHYLPREDNISOLONE SODIUM SUCCINATE
     Dosage: 2 MG/KG DAILY;
     Route: 042
     Dates: start: 20180609
  15. ZOVIRAX [Concomitant]
     Active Substance: ACYCLOVIR
  16. CICLOSPORINE [Suspect]
     Active Substance: CYCLOSPORINE
     Indication: PROPHYLAXIS AGAINST GRAFT VERSUS HOST DISEASE
     Dosage: 3 MG/KG DAILY;
     Route: 042
     Dates: start: 20180523
  17. TAZOCILLINE [Concomitant]
     Active Substance: PIPERACILLIN SODIUM\TAZOBACTAM SODIUM
  18. AMIKLIN [Concomitant]
     Active Substance: AMIKACIN SULFATE

REACTIONS (2)
  - Dyspnoea [Not Recovered/Not Resolved]
  - Left ventricular dysfunction [Not Recovered/Not Resolved]

NARRATIVE: CASE EVENT DATE: 201806
